FAERS Safety Report 9319629 (Version 2)
Quarter: 2013Q3

REPORT INFORMATION
  Report Type: Spontaneous
  Country: US (occurrence: US)
  Receive Date: 20130530
  Receipt Date: 20130708
  Transmission Date: 20140515
  Serious: Yes (Hospitalization)
  Sender: FDA-Public Use
  Company Number: US-GLAXOSMITHKLINE-A1016012A

PATIENT
  Age: 53 Year
  Sex: Female

DRUGS (3)
  1. FLOLAN [Suspect]
     Indication: PULMONARY ARTERIAL HYPERTENSION
     Dosage: 30NGKM CONTINUOUS
     Route: 042
     Dates: start: 20130118
  2. LETAIRIS [Concomitant]
     Dosage: 5MG PER DAY
     Route: 048
  3. COUMADIN [Concomitant]

REACTIONS (3)
  - Hospitalisation [Unknown]
  - Device related infection [Unknown]
  - Nausea [Unknown]
